FAERS Safety Report 6112296-9 (Version None)
Quarter: 2009Q1

REPORT INFORMATION
  Report Type: 
  Country: None (occurrence: None)
  Receive Date: 20090312
  Receipt Date: 20090302
  Transmission Date: 20090719
  Serious: Yes (Other)
  Sender: FDA-Public Use
  Company Number: GB-RANBAXY-2009RR-22107

PATIENT
  Sex: Female

DRUGS (2)
  1. PARACETAMOL [Suspect]
     Dosage: 8 G, UNK
     Route: 048
  2. ACETYLCYSTEINE [Suspect]
     Route: 042

REACTIONS (4)
  - DIARRHOEA [None]
  - FLUSHING [None]
  - OVERDOSE [None]
  - RENAL CORTICAL NECROSIS [None]
